FAERS Safety Report 5860501-6 (Version None)
Quarter: 2008Q3

REPORT INFORMATION
  Report Type: 
  Country: None (occurrence: None)
  Receive Date: 20080827
  Receipt Date: 20080122
  Transmission Date: 20090109
  Serious: No
  Sender: FDA-Public Use
  Company Number: US-ABBOTT-07P-163-0418206-00

PATIENT
  Sex: Female
  Weight: 84.898 kg

DRUGS (11)
  1. NIASPAN [Suspect]
     Indication: BLOOD CHOLESTEROL INCREASED
     Route: 048
     Dates: start: 20070924
  2. NIASPAN [Suspect]
     Dosage: WHITE
     Route: 048
     Dates: start: 20020101, end: 20070923
  3. NIASPAN [Suspect]
     Route: 048
     Dates: start: 20020101, end: 20070923
  4. LOTRIL 10/40 [Concomitant]
     Indication: BLOOD PRESSURE
     Route: 048
  5. METOPROLOL TARTRATE [Concomitant]
     Indication: DRUG USE FOR UNKNOWN INDICATION
     Route: 048
  6. DIOVAN HCT [Concomitant]
     Indication: DRUG USE FOR UNKNOWN INDICATION
     Route: 048
  7. VYTORIN [Concomitant]
     Indication: DRUG USE FOR UNKNOWN INDICATION
     Route: 048
  8. CALCIUM CARBONATE [Concomitant]
     Indication: DRUG USE FOR UNKNOWN INDICATION
     Route: 048
  9. ALENDRONATE SODIUM [Concomitant]
     Indication: DRUG USE FOR UNKNOWN INDICATION
     Route: 048
  10. LANTUS [Concomitant]
     Indication: DIABETES MELLITUS
  11. INSULIN ASPART [Concomitant]
     Indication: DIABETES MELLITUS

REACTIONS (1)
  - FLUSHING [None]
